FAERS Safety Report 13347560 (Version 2)
Quarter: 2017Q2

REPORT INFORMATION
  Report Type: Spontaneous
  Country: JP (occurrence: JP)
  Receive Date: 20170317
  Receipt Date: 20170425
  Transmission Date: 20170830
  Serious: Yes (Death, Life-Threatening, Hospitalization, Other)
  Sender: FDA-Public Use
  Company Number: JP-BRISTOL-MYERS SQUIBB COMPANY-BMS-2017-022788

PATIENT
  Age: 79 Year
  Sex: Female
  Weight: 45.9 kg

DRUGS (2)
  1. SPRYCEL [Suspect]
     Active Substance: DASATINIB
     Indication: ACUTE LYMPHOCYTIC LEUKAEMIA
     Route: 065
  2. SPRYCEL [Suspect]
     Active Substance: DASATINIB
     Indication: PHILADELPHIA CHROMOSOME POSITIVE
     Dosage: 20 MG, BID
     Route: 048
     Dates: start: 20111201, end: 20170110

REACTIONS (5)
  - Respiratory failure [Fatal]
  - Pleural effusion [Unknown]
  - Aspiration pleural cavity [Unknown]
  - Prescribed underdose [Unknown]
  - Renal failure [Unknown]

NARRATIVE: CASE EVENT DATE: 20170110
